FAERS Safety Report 22324305 (Version 2)
Quarter: 2023Q2

REPORT INFORMATION
  Report Type: Spontaneous
  Country: CN (occurrence: CN)
  Receive Date: 20230516
  Receipt Date: 20230526
  Transmission Date: 20230722
  Serious: Yes (Hospitalization)
  Sender: FDA-Public Use
  Company Number: CN-ELI_LILLY_AND_COMPANY-CN202305004880

PATIENT
  Age: 85 Year
  Sex: Female
  Weight: 60 kg

DRUGS (2)
  1. HUMULIN 70/30 [Suspect]
     Active Substance: INSULIN HUMAN
     Indication: Diabetes mellitus
     Dosage: UNK UNK, BID
     Route: 058
     Dates: start: 2004
  2. METFORMIN [Concomitant]
     Active Substance: METFORMIN HYDROCHLORIDE
     Indication: Product used for unknown indication

REACTIONS (6)
  - Blood glucose abnormal [Unknown]
  - Blood glucose increased [Unknown]
  - Product dose omission issue [Unknown]
  - Confusional state [Unknown]
  - Asthenia [Unknown]
  - Hypoacusis [Unknown]
